FAERS Safety Report 23818949 (Version 2)
Quarter: 2024Q2

REPORT INFORMATION
  Report Type: Report from Study
  Country: US (occurrence: US)
  Receive Date: 20240506
  Receipt Date: 20240515
  Transmission Date: 20240716
  Serious: Yes (Death)
  Sender: FDA-Public Use
  Company Number: US-JNJFOC-20240506823

PATIENT
  Age: 64 Year
  Sex: Female

DRUGS (2)
  1. SPRAVATO [Suspect]
     Active Substance: ESKETAMINE
     Indication: Depression
     Dosage: ^^56 MG, 2 TOTAL DOSES^^
     Dates: start: 20240219, end: 20240222
  2. SPRAVATO [Suspect]
     Active Substance: ESKETAMINE
     Dosage: ^^84 MG, 1 TOTAL DOSE^^
     Dates: start: 20240227, end: 20240227

REACTIONS (1)
  - Death [Fatal]
